FAERS Safety Report 25270533 (Version 3)
Quarter: 2025Q3

REPORT INFORMATION
  Report Type: Report from Study
  Country: CA (occurrence: CA)
  Receive Date: 20250505
  Receipt Date: 20250910
  Transmission Date: 20251021
  Serious: Yes (Other)
  Sender: JOHNSON AND JOHNSON
  Company Number: CA-JNJFOC-20250171784

PATIENT
  Age: 57 Year
  Sex: Female
  Weight: 55 kg

DRUGS (3)
  1. REMICADE [Suspect]
     Active Substance: INFLIXIMAB
     Indication: Psoriasis
     Route: 041
     Dates: start: 20100118
  2. REMICADE [Suspect]
     Active Substance: INFLIXIMAB
     Route: 041
  3. REMICADE [Suspect]
     Active Substance: INFLIXIMAB
     Dosage: BATCH NUMBER: 24F055 X2, 24F076 X1 EXPIRY DATE: 31-MAY-2027
     Route: 041

REACTIONS (13)
  - Lower respiratory tract infection [Recovered/Resolved]
  - Psoriasis [Recovering/Resolving]
  - Rotator cuff syndrome [Recovering/Resolving]
  - Weight decreased [Unknown]
  - Arthritis [Not Recovered/Not Resolved]
  - Rash [Not Recovered/Not Resolved]
  - Blood pressure increased [Recovering/Resolving]
  - Flushing [Recovering/Resolving]
  - Infusion related reaction [Recovering/Resolving]
  - Decreased appetite [Not Recovered/Not Resolved]
  - Respiratory syncytial virus infection [Unknown]
  - Stress [Unknown]
  - Incorrect drug administration rate [Unknown]

NARRATIVE: CASE EVENT DATE: 20240101
